FAERS Safety Report 9516536 (Version 2)
Quarter: 2013Q4

REPORT INFORMATION
  Report Type: Report from Study
  Country: IT (occurrence: IT)
  Receive Date: 20130911
  Receipt Date: 20131010
  Transmission Date: 20140711
  Serious: Yes (Hospitalization)
  Sender: FDA-Public Use
  Company Number: IT-CELGENEUS-083-C4047-13090007

PATIENT
  Age: 62 Year
  Sex: Female
  Weight: 66 kg

DRUGS (11)
  1. CC-4047 [Suspect]
     Indication: PLASMA CELL MYELOMA
     Dosage: 4 MILLIGRAM
     Route: 048
     Dates: start: 20130809, end: 20130823
  2. DEXAMETHASONE [Suspect]
     Indication: PLASMA CELL MYELOMA
     Dosage: 40 MILLIGRAM
     Route: 065
     Dates: start: 20130809, end: 20130823
  3. SELEPARINA [Concomitant]
     Indication: THROMBOSIS PROPHYLAXIS
     Dosage: .4 MILLILITER
     Route: 058
     Dates: start: 20130809
  4. ALLOPURINOL [Concomitant]
     Indication: PROPHYLAXIS
     Dosage: 300 MILLIGRAM
     Route: 048
     Dates: start: 20130809
  5. MAG 2 [Concomitant]
     Indication: HYPOMAGNESAEMIA
     Dosage: 1.5 GRAM
     Route: 048
     Dates: start: 20130809
  6. MYCOSTATIN [Concomitant]
     Indication: TONGUE COATED
     Dosage: 30 CC
     Route: 048
     Dates: start: 20130809
  7. LEVOFLOXACIN [Concomitant]
     Indication: ANTIBIOTIC PROPHYLAXIS
     Dosage: 500 MILLIGRAM
     Route: 048
     Dates: start: 20130823
  8. LEVOFLOXACIN [Concomitant]
     Indication: COLITIS
     Route: 041
  9. LENOGRASTIM [Concomitant]
     Indication: NEUTROPENIA
     Dosage: 33.6 MILLION UNITS
     Route: 058
     Dates: start: 20130823, end: 20130828
  10. DILTIAZEM [Concomitant]
     Indication: ATRIAL FLUTTER
     Dosage: 180 MILLIGRAM
     Route: 048
  11. OMEPRAZOLE [Concomitant]
     Indication: GASTRITIS PROPHYLAXIS
     Dosage: 40 MILLIGRAM
     Route: 048

REACTIONS (1)
  - Diarrhoea [Recovered/Resolved]
